FAERS Safety Report 12857744 (Version 1)
Quarter: 2016Q4

REPORT INFORMATION
  Report Type: Spontaneous
  Country: US (occurrence: US)
  Receive Date: 20161018
  Receipt Date: 20161018
  Transmission Date: 20170207
  Serious: No
  Sender: FDA-Public Use
  Company Number: US-ASTRAZENECA-2016SF06641

PATIENT
  Age: 48 Year
  Sex: Male
  Weight: 81.6 kg

DRUGS (5)
  1. NEXIUM [Suspect]
     Active Substance: ESOMEPRAZOLE MAGNESIUM
     Route: 048
     Dates: start: 2001
  2. PRILOSEC [Suspect]
     Active Substance: OMEPRAZOLE MAGNESIUM
     Indication: EROSIVE OESOPHAGITIS
     Route: 048
  3. PRILOSEC [Suspect]
     Active Substance: OMEPRAZOLE MAGNESIUM
     Indication: BARRETT^S OESOPHAGUS
     Route: 048
  4. PRILOSEC [Suspect]
     Active Substance: OMEPRAZOLE MAGNESIUM
     Indication: BARRETT^S OESOPHAGUS
     Dosage: GENERIC
     Route: 048
  5. PRILOSEC [Suspect]
     Active Substance: OMEPRAZOLE MAGNESIUM
     Indication: EROSIVE OESOPHAGITIS
     Dosage: GENERIC
     Route: 048

REACTIONS (12)
  - Intentional product misuse [Unknown]
  - Spinal deformity [Unknown]
  - Off label use [Unknown]
  - Expired product administered [Unknown]
  - Drug ineffective [Unknown]
  - Scoliosis [Unknown]
  - Drug dose omission [Unknown]
  - Barrett^s oesophagus [Unknown]
  - Arthritis [Unknown]
  - Product use issue [Unknown]
  - Body height decreased [Unknown]
  - Weight increased [Unknown]

NARRATIVE: CASE EVENT DATE: 2000
